FAERS Safety Report 8118561-8 (Version None)
Quarter: 2012Q1

REPORT INFORMATION
  Report Type: 
  Country: None (occurrence: None)
  Receive Date: 20120207
  Receipt Date: 20120130
  Transmission Date: 20120608
  Serious: Yes (Hospitalization)
  Sender: FDA-Public Use
  Company Number: DE-PFIZER INC-2011270306

PATIENT
  Age: 60 Year
  Sex: Female
  Weight: 71 kg

DRUGS (7)
  1. IRINOTECAN HCL [Suspect]
     Indication: COLORECTAL CANCER METASTATIC
     Dosage: 180 MG/M2, UNK
     Route: 042
     Dates: start: 20111010
  2. BEVACIZUMAB [Suspect]
     Indication: COLORECTAL CANCER METASTATIC
     Dosage: 5 MG/KG, UNK
     Route: 042
     Dates: start: 20111010
  3. FLUOROURACIL [Suspect]
     Dosage: 2400 MG/M2, UNK
     Route: 042
     Dates: start: 20111010
  4. RAMIPRIL [Suspect]
     Dosage: 5 MG, UNK
     Route: 048
  5. BISOPROLOL FUMARATE [Suspect]
     Dosage: 5 MG, UNK
     Route: 048
  6. FLUOROURACIL [Suspect]
     Indication: COLORECTAL CANCER METASTATIC
     Dosage: 400 MG/M2, UNK
     Route: 042
     Dates: start: 20111010
  7. LEUCOVORIN CALCIUM [Suspect]
     Indication: COLORECTAL CANCER METASTATIC
     Dosage: 400 MG/M2, UNK
     Route: 042
     Dates: start: 20111010

REACTIONS (1)
  - GENERAL PHYSICAL HEALTH DETERIORATION [None]
